FAERS Safety Report 19123140 (Version 1)
Quarter: 2021Q2

REPORT INFORMATION
  Report Type: Spontaneous
  Country: US (occurrence: US)
  Receive Date: 20210412
  Receipt Date: 20210412
  Transmission Date: 20210717
  Serious: No
  Sender: FDA-Public Use
  Company Number: US-BAYER-2021-120445

PATIENT
  Age: 23 Year
  Sex: Female

DRUGS (2)
  1. PFIZER?BIONTECH COVID?19 VACCINE [Concomitant]
     Active Substance: TOZINAMERAN
     Dosage: UNK UNK, ONCE
     Dates: start: 20210406, end: 20210406
  2. CLARITIN [Suspect]
     Active Substance: LORATADINE
     Indication: MULTIPLE ALLERGIES
     Dosage: UNK
     Dates: start: 202104

REACTIONS (3)
  - Wheezing [None]
  - Pulmonary pain [None]
  - Painful respiration [None]

NARRATIVE: CASE EVENT DATE: 20210407
